FAERS Safety Report 12622631 (Version 3)
Quarter: 2016Q3

REPORT INFORMATION
  Report Type: Spontaneous
  Country: JP (occurrence: JP)
  Receive Date: 20160804
  Receipt Date: 20160916
  Transmission Date: 20161109
  Serious: No
  Sender: FDA-Public Use
  Company Number: ALJP2016JP001118

PATIENT
  Age: 63 Year
  Sex: Female

DRUGS (3)
  1. VEGAMOX OPHTHALMIC SOLUTION 0.5% [Suspect]
     Active Substance: MOXIFLOXACIN HYDROCHLORIDE
     Indication: POSTOPERATIVE CARE
     Dosage: UNK
     Route: 047
     Dates: start: 20160705
  2. NEVANAC [Suspect]
     Active Substance: NEPAFENAC
     Indication: POSTOPERATIVE CARE
     Dosage: 1 GTT, QD
     Route: 047
     Dates: start: 20160705
  3. RINDERON V [Concomitant]
     Active Substance: BETAMETHASONE VALERATE
     Indication: POSTOPERATIVE CARE
     Dosage: UNK
     Route: 047
     Dates: start: 20160705

REACTIONS (1)
  - Cystoid macular oedema [Not Recovered/Not Resolved]

NARRATIVE: CASE EVENT DATE: 20160723
